FAERS Safety Report 11130079 (Version 1)
Quarter: 2015Q2

REPORT INFORMATION
  Report Type: Report from Study
  Country: BR (occurrence: BR)
  Receive Date: 20150521
  Receipt Date: 20150521
  Transmission Date: 20150821
  Serious: Yes (Hospitalization, Disabling, Other)
  Sender: FDA-Public Use
  Company Number: PHHY2015BR061075

PATIENT
  Age: 58 Year
  Sex: Female

DRUGS (2)
  1. SANDOSTATIN LAR DEPOT [Suspect]
     Active Substance: OCTREOTIDE ACETATE
     Indication: ACROMEGALY
     Dosage: 1 DF (20 MG), EVERY 8 WEEKS
     Route: 065
     Dates: end: 20141230
  2. SANDOSTATIN [Suspect]
     Active Substance: OCTREOTIDE ACETATE
     Indication: PRODUCT USED FOR UNKNOWN INDICATION
     Dosage: UNK UNK, TID
     Route: 065
     Dates: start: 2002

REACTIONS (7)
  - Abasia [Unknown]
  - Weight decreased [Unknown]
  - Road traffic accident [Unknown]
  - Femur fracture [Recovering/Resolving]
  - Tibia fracture [Recovering/Resolving]
  - Bone fissure [Recovered/Resolved]
  - Coma [Unknown]

NARRATIVE: CASE EVENT DATE: 20141220
